FAERS Safety Report 7055588-1 (Version None)
Quarter: 2010Q4

REPORT INFORMATION
  Report Type: 
  Country: None (occurrence: None)
  Receive Date: 20101021
  Receipt Date: 20101012
  Transmission Date: 20110411
  Serious: Yes (Other)
  Sender: FDA-Public Use
  Company Number: PHHY2009CA21085

PATIENT
  Sex: Male

DRUGS (2)
  1. SANDOSTATIN LAR [Suspect]
     Indication: CARCINOID TUMOUR
     Dosage: 60 MG, EVERY 4 WEEKS
     Route: 030
     Dates: start: 20020702
  2. DIURETICS [Concomitant]

REACTIONS (19)
  - APHASIA [None]
  - ARRHYTHMIA [None]
  - BLINDNESS [None]
  - BLOOD PRESSURE SYSTOLIC INCREASED [None]
  - CARDIAC OPERATION [None]
  - CARDIAC VALVE DISEASE [None]
  - DIZZINESS [None]
  - DYSPNOEA [None]
  - DYSPNOEA EXERTIONAL [None]
  - GOUT [None]
  - HEART RATE DECREASED [None]
  - INSOMNIA [None]
  - LOSS OF CONSCIOUSNESS [None]
  - MONOPLEGIA [None]
  - OEDEMA PERIPHERAL [None]
  - POSTURE ABNORMAL [None]
  - SERUM SEROTONIN INCREASED [None]
  - TACHYCARDIA [None]
  - TRANSIENT ISCHAEMIC ATTACK [None]
